FAERS Safety Report 13911270 (Version 1)
Quarter: 2017Q3

REPORT INFORMATION
  Report Type: Report from Study
  Country: CA (occurrence: CA)
  Receive Date: 20170828
  Receipt Date: 20170828
  Transmission Date: 20171127
  Serious: Yes (Other)
  Sender: FDA-Public Use
  Company Number: CA-GLAXOSMITHKLINE-CA2017GSK129501

PATIENT
  Age: 68 Year
  Sex: Female

DRUGS (1)
  1. SALBUTAMOL SULPHATE [Suspect]
     Active Substance: ALBUTEROL SULFATE
     Indication: PRODUCT USED FOR UNKNOWN INDICATION
     Dosage: UNK

REACTIONS (6)
  - Thyroid disorder [Unknown]
  - Aortic valve replacement [Unknown]
  - Chronic sinusitis [Unknown]
  - Sinus polyp [Unknown]
  - Aortic valve disease [Unknown]
  - Paranasal sinus polypectomy [Unknown]

NARRATIVE: CASE EVENT DATE: 201606
